FAERS Safety Report 5462899-X (Version None)
Quarter: 2007Q3

REPORT INFORMATION
  Report Type: 
  Country: None (occurrence: None)
  Receive Date: 20070920
  Receipt Date: 20070215
  Transmission Date: 20080115
  Serious: No
  Sender: FDA-Public Use
  Company Number: US-BAUSCH-2007BL000504

PATIENT
  Age: 59 Year
  Sex: Female
  Weight: 63 kg

DRUGS (4)
  1. NEOMYCIN AND POLYMYXIN B SULFATES AND HYDROCORTISONE OTIC SUSPENSION [Suspect]
     Route: 047
     Dates: start: 20070202, end: 20070203
  2. NEOMYCIN AND POLYMYXIN B SULFATES AND HYDROCORTISONE OTIC SUSPENSION [Suspect]
     Route: 047
     Dates: start: 20070205, end: 20070205
  3. VITAMINS [Concomitant]
  4. INDEROL [Concomitant]
     Route: 048
     Dates: start: 19870101

REACTIONS (5)
  - ERYTHEMA OF EYELID [None]
  - EYELID BLEEDING [None]
  - EYELID OEDEMA [None]
  - MEDICATION ERROR [None]
  - SKIN LACERATION [None]
